FAERS Safety Report 21903237 (Version 4)
Quarter: 2023Q1

REPORT INFORMATION
  Report Type: Spontaneous
  Country: JP (occurrence: JP)
  Receive Date: 20230124
  Receipt Date: 20230315
  Transmission Date: 20230417
  Serious: Yes (Life-Threatening, Hospitalization)
  Sender: FDA-Public Use
  Company Number: JP-PFIZER INC-PV202300011313

PATIENT
  Age: 77 Year
  Sex: Male

DRUGS (2)
  1. GEMCITABINE HYDROCHLORIDE [Suspect]
     Active Substance: GEMCITABINE HYDROCHLORIDE
     Indication: Ureteric cancer metastatic
     Dosage: UNK, CYCLIC
     Dates: start: 201905, end: 2019
  2. CISPLATIN [Suspect]
     Active Substance: CISPLATIN
     Indication: Ureteric cancer metastatic
     Dosage: UNK, CYCLIC
     Dates: start: 201905

REACTIONS (1)
  - Drug eruption [Unknown]
